FAERS Safety Report 6133528-7 (Version None)
Quarter: 2009Q1

REPORT INFORMATION
  Report Type: 
  Country: None (occurrence: None)
  Receive Date: 20090325
  Receipt Date: 20090325
  Transmission Date: 20090719
  Serious: Yes (Other)
  Sender: FDA-Public Use
  Company Number: None

PATIENT
  Sex: Male
  Weight: 99.7913 kg

DRUGS (4)
  1. VALPROATE SODIUM [Suspect]
     Indication: EPILEPSY
     Dosage: 1250 MG AM , 1250 PM 1500 - Q8H AS NOTED PO
     Route: 048
     Dates: start: 20070314, end: 20090324
  2. . [Concomitant]
  3. . [Concomitant]
  4. TOPAMAX [Suspect]
     Indication: EPILEPSY
     Dosage: 200 MG Q

REACTIONS (2)
  - CONVULSION [None]
  - THERAPEUTIC RESPONSE UNEXPECTED WITH DRUG SUBSTITUTION [None]
